FAERS Safety Report 7878976-X (Version None)
Quarter: 2011Q4

REPORT INFORMATION
  Report Type: 
  Country: None (occurrence: None)
  Receive Date: 20111101
  Receipt Date: 20111017
  Transmission Date: 20120403
  Serious: Yes (Hospitalization)
  Sender: FDA-Public Use
  Company Number: PHHY2011FR91315

PATIENT
  Sex: Female

DRUGS (1)
  1. EXFORGE [Suspect]
     Indication: HYPERTENSION
     Dosage: 1 DF, DAILY

REACTIONS (6)
  - BRONCHIAL DISORDER [None]
  - BRONCHIAL OEDEMA [None]
  - CHOKING [None]
  - BRONCHIAL HAEMORRHAGE [None]
  - BRONCHIAL INJURY [None]
  - PULMONARY NECROSIS [None]
